FAERS Safety Report 10522021 (Version 2)
Quarter: 2015Q1

REPORT INFORMATION
  Report Type: Spontaneous
  Country: US (occurrence: None)
  Receive Date: 20141014
  Receipt Date: 20150109
  Transmission Date: 20150720
  Serious: Yes (Disabling, Other)
  Sender: FDA-Public Use
  Company Number: 2014-20464

PATIENT
  Age: 74 Year
  Sex: Male
  Weight: 141.5 kg

DRUGS (5)
  1. EYLEA [Suspect]
     Active Substance: AFLIBERCEPT
     Indication: AGE-RELATED MACULAR DEGENERATION
     Route: 031
     Dates: start: 201408, end: 20141009
  2. AMLODIPINE [Concomitant]
     Active Substance: AMLODIPINE BESYLATE
  3. COUMADIN [Concomitant]
     Active Substance: WARFARIN SODIUM
  4. CARVEDILOL (CARVEDILOL) [Concomitant]
     Active Substance: CARVEDILOL
  5. LISINOPRIL (LISINOPRIL) [Concomitant]
     Active Substance: LISINOPRIL

REACTIONS (4)
  - Eye pain [None]
  - Blindness [None]
  - Photophobia [None]
  - Eye infection [None]

NARRATIVE: CASE EVENT DATE: 20140910
